FAERS Safety Report 7384131-2 (Version None)
Quarter: 2011Q1

REPORT INFORMATION
  Report Type: 
  Country: None (occurrence: None)
  Receive Date: 20110330
  Receipt Date: 20110324
  Transmission Date: 20110831
  Serious: Yes (Other)
  Sender: FDA-Public Use
  Company Number: A0919826A

PATIENT
  Age: 86 Year
  Sex: Male

DRUGS (9)
  1. METOPROLOL TARTRATE [Concomitant]
  2. TAMSULOSIN [Concomitant]
  3. ALPRAZOLAM [Concomitant]
  4. SIMVASTATIN [Concomitant]
  5. ISOSORBIDE MONONITRATE [Concomitant]
  6. ALLOPURINOL [Concomitant]
  7. GABAPENTIN [Concomitant]
  8. OLUX [Suspect]
     Dosage: 1APP AS REQUIRED
     Route: 061
     Dates: start: 20100901, end: 20100901
  9. RABEPRAZOLE SODIUM [Concomitant]

REACTIONS (1)
  - LOSS OF CONSCIOUSNESS [None]
